FAERS Safety Report 16497761 (Version 2)
Quarter: 2019Q3

REPORT INFORMATION
  Report Type: Spontaneous
  Country: CA (occurrence: CA)
  Receive Date: 20190628
  Receipt Date: 20190918
  Transmission Date: 20191004
  Serious: Yes (Hospitalization, Other)
  Sender: FDA-Public Use
  Company Number: CA-GLAXOSMITHKLINE-CA2019AMR109340

PATIENT
  Age: 78 Year
  Sex: Male

DRUGS (8)
  1. AZITHROMYCINE [Suspect]
     Active Substance: AZITHROMYCIN
     Dosage: UNK
     Dates: start: 201906
  2. ZOSTER VZV-GE-AS01B [Suspect]
     Active Substance: RECOMBINANT VARICELLA ZOSTER VIRUS (VZV) GLYCOPROTEIN E
     Indication: PROPHYLAXIS
     Dates: start: 20150428
  3. SHINGRIX [Suspect]
     Active Substance: RECOMBINANT VARICELLA ZOSTER VIRUS (VZV) GLYCOPROTEIN E
     Indication: PROPHYLAXIS
     Dates: start: 20190611, end: 20190611
  4. TRELEGY ELLIPTA [Suspect]
     Active Substance: FLUTICASONE FUROATE\UMECLIDINIUM BROMIDE\VILANTEROL TRIFENATATE
     Indication: CHRONIC OBSTRUCTIVE PULMONARY DISEASE
     Dosage: UNK
     Dates: start: 20190604
  5. AMOXICILLIN. [Suspect]
     Active Substance: AMOXICILLIN
     Dosage: UNK
  6. PNEUMOCOCCAL VACCINE POLYVALENT NOS [Suspect]
     Active Substance: PNEUMOCOCCAL VACCINE POLYVALENT
     Indication: PROPHYLAXIS
     Dates: start: 20150908, end: 20150908
  7. FLUARIX QUADRIVALENT 2017/2018 [Suspect]
     Active Substance: INFLUENZA A VIRUS A/HONG KONG/4801/2014 X-263B (H3N2) ANTIGEN (FORMALDEHYDE INACTIVATED)\INFLUENZA A VIRUS A/SINGAPORE/GP1908/2015 IVR-180 (H1N1) ANTIGEN (FORMALDEHYDE INACTIVATED)\INFLUENZA B VIRUS B/BRISBANE/60/2008 ANTIGEN (FORMALDEHYDE INACTIVATED)\INFLUENZA B VIRUS B/PHUKET/3073/2013 ANTIGEN (F
     Indication: PROPHYLAXIS
     Dates: start: 20171101, end: 20171101
  8. CEFTRIAXONE. [Suspect]
     Active Substance: CEFTRIAXONE
     Indication: PNEUMONIA
     Dosage: UNK

REACTIONS (31)
  - Osteoarthritis [Unknown]
  - Anxiety [Unknown]
  - Cardiac failure congestive [Unknown]
  - Pulmonary mass [Unknown]
  - Faeces discoloured [Unknown]
  - Diarrhoea [Unknown]
  - Macule [Unknown]
  - Haemoglobin decreased [Unknown]
  - Bronchitis [Unknown]
  - Dyslipidaemia [Unknown]
  - Wheezing [Unknown]
  - Chronic obstructive pulmonary disease [Unknown]
  - Senile dementia [Unknown]
  - Bradycardia [Unknown]
  - Back pain [Unknown]
  - Hypertension [Unknown]
  - Pneumonia [Recovered/Resolved]
  - Melaena [Unknown]
  - Hip arthroplasty [Unknown]
  - Oedema peripheral [Recovered/Resolved]
  - Pulmonary fibrosis [Unknown]
  - Arteriosclerosis coronary artery [Unknown]
  - Pulmonary oedema [Unknown]
  - Hypercholesterolaemia [Unknown]
  - Rotator cuff syndrome [Unknown]
  - Epigastric discomfort [Unknown]
  - Cough [Unknown]
  - Dyspnoea exertional [Unknown]
  - Lung disorder [Unknown]
  - Coronary artery disease [Unknown]
  - Intervertebral disc degeneration [Unknown]

NARRATIVE: CASE EVENT DATE: 20190615
